FAERS Safety Report 25074153 (Version 1)
Quarter: 2025Q1

REPORT INFORMATION
  Report Type: Spontaneous
  Country: US (occurrence: None)
  Receive Date: 20250313
  Receipt Date: 20250313
  Transmission Date: 20250409
  Serious: Yes (Hospitalization)
  Sender: FDA-CTU
  Company Number: None

PATIENT
  Age: 61 Year
  Sex: Male
  Weight: 101.7 kg

DRUGS (4)
  1. METHOTREXATE [Suspect]
     Active Substance: METHOTREXATE
     Dates: end: 20250131
  2. PONATINIB [Suspect]
     Active Substance: PONATINIB
     Dates: end: 20250307
  3. PREDNISONE [Suspect]
     Active Substance: PREDNISONE
     Dates: end: 20250307
  4. VINCRISTINE [Suspect]
     Active Substance: VINCRISTINE
     Dates: end: 20250103

REACTIONS (3)
  - Pneumonia [None]
  - Sepsis [None]
  - Coronavirus test positive [None]

NARRATIVE: CASE EVENT DATE: 20250307
